FAERS Safety Report 11472188 (Version 1)
Quarter: 2015Q3

REPORT INFORMATION
  Report Type: Spontaneous
  Country: US (occurrence: US)
  Receive Date: 20150908
  Receipt Date: 20150908
  Transmission Date: 20151125
  Serious: No
  Sender: FDA-Public Use
  Company Number: US-SA-2015SA064328

PATIENT
  Age: 45 Year
  Sex: Female

DRUGS (3)
  1. TOUJEO [Suspect]
     Active Substance: INSULIN GLARGINE
     Indication: DIABETES MELLITUS
     Dosage: DOSE:96 UNIT(S)
     Route: 065
     Dates: start: 20150501, end: 20150511
  2. SOLOSTAR [Concomitant]
     Active Substance: DEVICE
     Dates: start: 20150501, end: 20150511
  3. HUMALOG [Concomitant]
     Active Substance: INSULIN LISPRO

REACTIONS (3)
  - Pyrexia [Unknown]
  - Blood glucose increased [Unknown]
  - Ear infection [Unknown]

NARRATIVE: CASE EVENT DATE: 201505
